FAERS Safety Report 8620731-7 (Version None)
Quarter: 2012Q3

REPORT INFORMATION
  Report Type: 
  Country: None (occurrence: None)
  Receive Date: 20120824
  Receipt Date: 20120816
  Transmission Date: 20120928
  Serious: Yes (Hospitalization)
  Sender: FDA-Public Use
  Company Number: US-US-EMD SERONO, INC.-7099774

PATIENT
  Sex: Female

DRUGS (5)
  1. DITROPAN [Concomitant]
     Indication: PRODUCT USED FOR UNKNOWN INDICATION
  2. IBUPROFEN [Concomitant]
     Indication: PAIN
  3. REBIF [Suspect]
     Indication: MULTIPLE SCLEROSIS
     Route: 058
     Dates: start: 20110707, end: 20111101
  4. GABAPENTIN [Concomitant]
     Indication: PRODUCT USED FOR UNKNOWN INDICATION
  5. REBIF [Suspect]
     Route: 058

REACTIONS (5)
  - INJECTION SITE HAEMATOMA [None]
  - MULTIPLE SCLEROSIS RELAPSE [None]
  - LIP INJURY [None]
  - FALL [None]
  - SKIN DISCOLOURATION [None]
